FAERS Safety Report 12561024 (Version 1)
Quarter: 2016Q3

REPORT INFORMATION
  Report Type: Spontaneous
  Country: US (occurrence: None)
  Receive Date: 20160714
  Receipt Date: 20160714
  Transmission Date: 20161109
  Serious: Yes (Death)
  Sender: FDA-Public Use
  Company Number: None

PATIENT
  Age: 83 Year
  Sex: Female

DRUGS (4)
  1. ONDANSETRON [Concomitant]
     Active Substance: ONDANSETRON
  2. POMALYST [Suspect]
     Active Substance: POMALIDOMIDE
     Indication: PLASMA CELL MYELOMA
     Route: 048
  3. OMEPRAZOLE. [Concomitant]
     Active Substance: OMEPRAZOLE
  4. SENNOSIDES. [Concomitant]
     Active Substance: SENNOSIDES

REACTIONS (6)
  - Asthenia [None]
  - Hypercalcaemia [None]
  - Pancytopenia [None]
  - Acute kidney injury [None]
  - Thrombocytopenia [None]
  - Memory impairment [None]

NARRATIVE: CASE EVENT DATE: 20150215
